FAERS Safety Report 4741603-4 (Version None)
Quarter: 2005Q3

REPORT INFORMATION
  Report Type: 
  Country: None (occurrence: None)
  Receive Date: 20050808
  Receipt Date: 20050801
  Transmission Date: 20060218
  Serious: Yes (Hospitalization)
  Sender: FDA-Public Use
  Company Number: FR-2005-005226

PATIENT
  Age: 77 Year
  Sex: Female

DRUGS (3)
  1. SOTALOL HCL [Suspect]
     Indication: TACHYCARDIA
     Dosage: 40 MG, 2X/DAY, ORAL
     Route: 048
     Dates: end: 20050307
  2. NEO-MERCAZOLE TAB [Suspect]
     Indication: BASEDOW'S DISEASE
     Dosage: 20 MG, 2X/DAY, ORAL
     Route: 048
     Dates: start: 20050131, end: 20050307
  3. LEVOTHYROXINE SODIUM [Suspect]
     Indication: ENDOCRINE DISORDER
     Dosage: 75 UG, 1X/DAY
     Dates: start: 20050228, end: 20050307

REACTIONS (3)
  - AGRANULOCYTOSIS [None]
  - PYREXIA [None]
  - VOMITING [None]
